FAERS Safety Report 8510330-X (Version None)
Quarter: 2012Q3

REPORT INFORMATION
  Report Type: 
  Country: None (occurrence: None)
  Receive Date: 20120713
  Receipt Date: 20120703
  Transmission Date: 20120928
  Serious: Yes (Hospitalization)
  Sender: FDA-Public Use
  Company Number: FR-ROCHE-1084261

PATIENT
  Sex: Female
  Weight: 69 kg

DRUGS (9)
  1. MOTILIUM [Concomitant]
     Indication: ABDOMINAL PAIN UPPER
     Dates: start: 20110901
  2. VISMODEGIB [Suspect]
     Indication: NEOPLASM MALIGNANT
     Route: 048
     Dates: start: 20110725
  3. ATORVASTATIN [Concomitant]
     Indication: HYPERCHOLESTEROLAEMIA
     Dates: start: 20110401, end: 20120111
  4. MOTILIUM [Concomitant]
     Indication: NAUSEA
     Dates: start: 20120308
  5. SPASFON [Concomitant]
     Indication: ABDOMINAL PAIN UPPER
     Dates: start: 20110805
  6. RANITIDINE [Concomitant]
     Indication: ABDOMINAL PAIN UPPER
     Dates: start: 20120112
  7. CLAMOXYL (FRANCE) [Concomitant]
     Indication: PRODUCTIVE COUGH
     Dates: start: 20120405, end: 20120413
  8. MUCOMYST [Concomitant]
     Indication: PRODUCTIVE COUGH
     Dates: start: 20120405, end: 20120413
  9. FERROUS SULFATE TAB [Concomitant]
     Indication: ANAEMIA
     Dates: start: 20120420

REACTIONS (3)
  - VOMITING [None]
  - ILL-DEFINED DISORDER [None]
  - DIARRHOEA [None]
